FAERS Safety Report 4961572-1 (Version None)
Quarter: 2006Q1

REPORT INFORMATION
  Report Type: 
  Country: None (occurrence: None)
  Receive Date: 20060329
  Receipt Date: 20060316
  Transmission Date: 20060701
  Serious: Yes (Life-Threatening, Hospitalization, Other)
  Sender: FDA-Public Use
  Company Number: 2006016134

PATIENT
  Age: 58 Year
  Sex: Male
  Weight: 91 kg

DRUGS (7)
  1. VFEND [Suspect]
     Indication: CANDIDIASIS
     Dosage: 600 MG (300 MG, 2 IN 1 D), INTRAVENOUS
     Route: 042
     Dates: start: 20060122, end: 20060221
  2. FLUCONAZOLE [Suspect]
     Indication: CANDIDIASIS
     Dates: start: 20060101, end: 20060122
  3. CANCIDAS [Suspect]
     Indication: CANDIDIASIS
     Dosage: (70 MG), INTRAVENOUS
     Route: 042
     Dates: start: 20060215, end: 20060215
  4. OMEPRAZOLE [Concomitant]
  5. LASIX [Concomitant]
  6. INNOHEP [Concomitant]
  7. GLUCOPHAGE [Concomitant]

REACTIONS (8)
  - BRADYCARDIA [None]
  - DRUG INEFFECTIVE [None]
  - DRUG INTERACTION [None]
  - ELECTROCARDIOGRAM QT PROLONGED [None]
  - HYPOKALAEMIA [None]
  - HYPOPHOSPHATAEMIA [None]
  - TORSADE DE POINTES [None]
  - VENTRICULAR EXTRASYSTOLES [None]
